FAERS Safety Report 10860748 (Version 2)
Quarter: 2015Q4

REPORT INFORMATION
  Report Type: Report from Study
  Country: DE (occurrence: DE)
  Receive Date: 20150224
  Receipt Date: 20151121
  Transmission Date: 20160304
  Serious: Yes (Hospitalization)
  Sender: FDA-Public Use
  Company Number: PHHY2015DE019452

PATIENT
  Age: 22 Year
  Sex: Female

DRUGS (9)
  1. GILENYA [Suspect]
     Active Substance: FINGOLIMOD HYDROCHLORIDE
     Indication: MULTIPLE SCLEROSIS
     Dosage: 0.5 MG, UNK
     Route: 048
     Dates: start: 20130430, end: 20140510
  2. EMSELEX [Concomitant]
     Active Substance: DARIFENACIN HYDROBROMIDE
     Indication: PRODUCT USED FOR UNKNOWN INDICATION
     Dosage: 7.5 MG, QD (0-0-1)
     Route: 048
  3. FLUOXETINE [Concomitant]
     Active Substance: FLUOXETINE HYDROCHLORIDE
     Dosage: 40 MG, 1-0-0
     Route: 048
  4. CYMBALTA [Concomitant]
     Active Substance: DULOXETINE HYDROCHLORIDE
     Indication: PRODUCT USED FOR UNKNOWN INDICATION
     Dosage: 60 MG, QD (1-0-0 )
     Route: 065
  5. ZOPICLONE [Concomitant]
     Active Substance: ZOPICLONE
     Indication: PRODUCT USED FOR UNKNOWN INDICATION
     Dosage: 7.5 MG, UNK
     Route: 065
  6. L-THYROXINE [Concomitant]
     Active Substance: LEVOTHYROXINE
     Indication: PRODUCT USED FOR UNKNOWN INDICATION
     Dosage: 50 UG, QD (1-0-0)
     Route: 048
     Dates: start: 2010
  7. FLUOXETINE [Concomitant]
     Active Substance: FLUOXETINE HYDROCHLORIDE
     Indication: PRODUCT USED FOR UNKNOWN INDICATION
     Dosage: 40 MG, (2-0-0 )
     Route: 048
     Dates: start: 20130430
  8. SPASMEX [Concomitant]
     Active Substance: TROSPIUM CHLORIDE
     Indication: PRODUCT USED FOR UNKNOWN INDICATION
     Route: 065
  9. EMSELEX [Concomitant]
     Active Substance: DARIFENACIN HYDROBROMIDE
     Dosage: 15 MG, QD (1-0-0)
     Route: 048

REACTIONS (34)
  - Body temperature increased [Unknown]
  - Epilepsy [Recovered/Resolved]
  - Speech disorder [Unknown]
  - Clonus [Unknown]
  - White blood cell count decreased [Unknown]
  - Dyskinesia [Recovered/Resolved]
  - Haemoglobin decreased [Unknown]
  - Pyramidal tract syndrome [Unknown]
  - Hyperreflexia [Unknown]
  - Coma [Recovered/Resolved]
  - Monoparesis [Unknown]
  - Borderline personality disorder [Unknown]
  - Muscle spasticity [Unknown]
  - Myoclonus [Unknown]
  - Limb discomfort [Unknown]
  - Hypoaesthesia [Unknown]
  - Depressed level of consciousness [Recovered/Resolved]
  - Mean cell volume decreased [Unknown]
  - Histrionic personality disorder [Unknown]
  - Visual pathway disorder [Unknown]
  - Visual acuity reduced [Unknown]
  - Blood lactate dehydrogenase increased [Unknown]
  - Disturbance in attention [Unknown]
  - Extensor plantar response [Unknown]
  - CSF test abnormal [Unknown]
  - Respiratory failure [Unknown]
  - Haematocrit decreased [Unknown]
  - Gait disturbance [Unknown]
  - Saccadic eye movement [Unknown]
  - Mean cell haemoglobin decreased [Unknown]
  - Paresis [Unknown]
  - Central nervous system lesion [Unknown]
  - Hypoacusis [Unknown]
  - Heart rate decreased [Unknown]

NARRATIVE: CASE EVENT DATE: 201308
